FAERS Safety Report 11727642 (Version 1)
Quarter: 2015Q4

REPORT INFORMATION
  Report Type: Report from Study
  Country: US (occurrence: US)
  Receive Date: 20151112
  Receipt Date: 20151112
  Transmission Date: 20160304
  Serious: Yes (Other)
  Sender: FDA-Public Use
  Company Number: US-BRISTOL-MYERS SQUIBB COMPANY-BMS-2015-075829

PATIENT
  Age: 67 Year
  Sex: Female

DRUGS (1)
  1. WARFARIN SODIUM. [Suspect]
     Active Substance: WARFARIN SODIUM
     Indication: CEREBROVASCULAR ACCIDENT PROPHYLAXIS
     Route: 065

REACTIONS (6)
  - Colon operation [Unknown]
  - Transfusion [Unknown]
  - Haemorrhage [Unknown]
  - Arteriovenous malformation [Unknown]
  - Thrombosis [Unknown]
  - Anaemia [Unknown]
